FAERS Safety Report 4646910-1 (Version None)
Quarter: 2005Q2

REPORT INFORMATION
  Report Type: 
  Country: None (occurrence: None)
  Receive Date: 20050331
  Receipt Date: 20050215
  Transmission Date: 20051028
  Serious: No
  Sender: FDA-Public Use
  Company Number: 05P-163-0290712-00

PATIENT
  Age: 45 Year
  Sex: Female
  Weight: 51.7101 kg

DRUGS (19)
  1. HUMIRA [Suspect]
     Indication: RHEUMATOID ARTHRITIS
     Dosage: SEE IMAGE
     Route: 058
     Dates: start: 20030301, end: 20031001
  2. HUMIRA [Suspect]
     Indication: RHEUMATOID ARTHRITIS
     Dosage: SEE IMAGE
     Route: 058
     Dates: start: 20031001, end: 20050207
  3. METHOTREXATE SODIUM [Concomitant]
  4. LEVOTHYROXINE SODIUM [Concomitant]
  5. FOLIC ACID [Concomitant]
  6. CELECOXIB [Concomitant]
  7. ESTRATEST H.S. [Concomitant]
  8. ESOMEPRAZOLE [Concomitant]
  9. LEFLUNOMIDE [Concomitant]
  10. ZOLPIDEM TARTRATE [Concomitant]
  11. PILOCARPINE HYDROCHLORIDE [Concomitant]
  12. OXYCODONE HCL [Concomitant]
  13. OXYCODONE HCL [Concomitant]
  14. DIAZEPAM [Concomitant]
  15. METAXALONE [Concomitant]
  16. BIOTIN [Concomitant]
  17. FISH OIL [Concomitant]
  18. TWIN LABS HAIR FACTOR [Concomitant]
  19. ACCU KIDS VITAMINS [Concomitant]

REACTIONS (6)
  - EXCORIATION [None]
  - FALL [None]
  - HAND FRACTURE [None]
  - LIMB INJURY [None]
  - LOCALISED INFECTION [None]
  - NAIL DISCOLOURATION [None]
